FAERS Safety Report 6634006-9 (Version None)
Quarter: 2010Q1

REPORT INFORMATION
  Report Type: 
  Country: None (occurrence: None)
  Receive Date: 20100315
  Receipt Date: 20100303
  Transmission Date: 20100710
  Serious: Yes (Hospitalization)
  Sender: FDA-Public Use
  Company Number: PHHY2010AU11981

PATIENT
  Sex: Male

DRUGS (2)
  1. CLOZARIL [Suspect]
     Dosage: UNKNOWN DOSE
  2. CLOZARIL [Suspect]
     Dosage: 300 MG
     Dates: start: 20100201

REACTIONS (1)
  - PSYCHIATRIC SYMPTOM [None]
